FAERS Safety Report 6393235-2 (Version None)
Quarter: 2009Q4

REPORT INFORMATION
  Report Type: 
  Country: None (occurrence: None)
  Receive Date: 20091008
  Receipt Date: 20090926
  Transmission Date: 20100525
  Serious: Yes (Other)
  Sender: FDA-Public Use
  Company Number: US-JNJFOC-20091000176

PATIENT
  Sex: Male
  Weight: 17.69 kg

DRUGS (5)
  1. TYLENOL (CAPLET) [Suspect]
     Route: 048
  2. TYLENOL (CAPLET) [Suspect]
     Indication: PYREXIA
     Dosage: ^360 MG EVERY 4-6 HOURS OFF AND ON AS NEEDED^
     Route: 048
  3. ALBUTEROL [Concomitant]
  4. SINGULAIR [Concomitant]
  5. PULMICORT [Concomitant]

REACTIONS (2)
  - IRRITABILITY [None]
  - TRANSMISSION OF AN INFECTIOUS AGENT VIA A MEDICINAL PRODUCT [None]
